FAERS Safety Report 21996022 (Version 1)
Quarter: 2023Q1

REPORT INFORMATION
  Report Type: Spontaneous
  Country: US (occurrence: US)
  Receive Date: 20230215
  Receipt Date: 20230215
  Transmission Date: 20230417
  Serious: No
  Sender: FDA-Public Use
  Company Number: US-ALLERGAN-2221762US

PATIENT
  Sex: Female

DRUGS (1)
  1. TAZAROTENE [Suspect]
     Active Substance: TAZAROTENE
     Indication: Product used for unknown indication
     Dosage: 0.1 %
     Route: 003

REACTIONS (4)
  - Ocular hyperaemia [Unknown]
  - Erythema of eyelid [Unknown]
  - Eye swelling [Unknown]
  - Eyelid oedema [Unknown]
